FAERS Safety Report 13493092 (Version 1)
Quarter: 2017Q2

REPORT INFORMATION
  Report Type: Spontaneous
  Country: US (occurrence: US)
  Receive Date: 20170427
  Receipt Date: 20170427
  Transmission Date: 20170830
  Serious: Yes (Hospitalization)
  Sender: FDA-Public Use
  Company Number: US-AMGEN-USASP2017060961

PATIENT
  Age: 47 Year
  Sex: Female

DRUGS (3)
  1. METHOTREXATE. [Concomitant]
     Active Substance: METHOTREXATE
  2. ENBREL [Suspect]
     Active Substance: ETANERCEPT
     Dosage: UNK
     Route: 065
     Dates: start: 20170413
  3. ENBREL [Suspect]
     Active Substance: ETANERCEPT
     Indication: RHEUMATOID ARTHRITIS
     Dosage: UNK UNK, QWK
     Route: 065
     Dates: start: 2015, end: 201605

REACTIONS (7)
  - Gait disturbance [Unknown]
  - Intervertebral disc disorder [Unknown]
  - Drug dose omission [Unknown]
  - Blood potassium decreased [Unknown]
  - Nerve compression [Unknown]
  - Nerve injury [Unknown]
  - Muscle injury [Unknown]

NARRATIVE: CASE EVENT DATE: 201605
